FAERS Safety Report 8400837-8 (Version None)
Quarter: 2012Q2

REPORT INFORMATION
  Report Type: 
  Country: None (occurrence: None)
  Receive Date: 20120531
  Receipt Date: 20120523
  Transmission Date: 20120825
  Serious: Yes (Other)
  Sender: FDA-Public Use
  Company Number: DE-AMGEN-DEUSP2012033382

PATIENT
  Sex: Female

DRUGS (3)
  1. ENBREL [Suspect]
     Indication: PSORIATIC ARTHROPATHY
     Dosage: 50 MG, 2X/WEEK
     Route: 065
     Dates: start: 20111130
  2. CORTISONE ACETATE [Concomitant]
     Dosage: 5 MG, DAILY
     Dates: start: 20120517, end: 20120517
  3. PENICILLIN GRUNENTHAL [Concomitant]
     Dosage: UNK

REACTIONS (3)
  - OPEN WOUND [None]
  - BRONCHITIS [None]
  - SINUSITIS [None]
